FAERS Safety Report 4637723-5 (Version None)
Quarter: 2005Q2

REPORT INFORMATION
  Report Type: 
  Country: None (occurrence: None)
  Receive Date: 20050328
  Receipt Date: 20041209
  Transmission Date: 20051028
  Serious: No
  Sender: FDA-Public Use
  Company Number: USA041286017

PATIENT
  Age: 35 Year
  Sex: Female

DRUGS (1)
  1. STRATTERA [Suspect]
     Dosage: 80 MG

REACTIONS (1)
  - URINARY TRACT INFECTION [None]
